FAERS Safety Report 12178751 (Version 1)
Quarter: 2016Q1

REPORT INFORMATION
  Report Type: Spontaneous
  Country: US (occurrence: None)
  Receive Date: 20160314
  Receipt Date: 20160314
  Transmission Date: 20160526
  Serious: Yes (Other)
  Sender: FDA-Public Use
  Company Number: None

PATIENT
  Age: 58 Year
  Sex: Male

DRUGS (1)
  1. TACROLIMUS 1MG SANDOZ [Suspect]
     Active Substance: TACROLIMUS
     Dosage: 4 BID

REACTIONS (1)
  - Renal failure [None]

NARRATIVE: CASE EVENT DATE: 20160301
